FAERS Safety Report 23738702 (Version 2)
Quarter: 2024Q2

REPORT INFORMATION
  Report Type: Report from Study
  Country: CO (occurrence: CO)
  Receive Date: 20240412
  Receipt Date: 20240501
  Transmission Date: 20240716
  Serious: Yes (Hospitalization, Other)
  Sender: FDA-Public Use
  Company Number: CO-ABBVIE-5712304

PATIENT
  Age: 34 Year
  Sex: Female

DRUGS (2)
  1. BOTOX [Suspect]
     Active Substance: ONABOTULINUMTOXINA
     Indication: Migraine
     Dosage: TIME INTERVAL: AS NECESSARY: FORM STRENGTH: 200 MILLIGRAM
     Route: 030
     Dates: start: 20220326, end: 20220326
  2. BOTOX [Suspect]
     Active Substance: ONABOTULINUMTOXINA
     Indication: Migraine
     Dosage: TIME INTERVAL: AS NECESSARY: FORM STRENGTH: 200 MILLIGRAM
     Route: 030
     Dates: start: 20231009, end: 20231009

REACTIONS (8)
  - Schizophrenia [Not Recovered/Not Resolved]
  - Epilepsy [Unknown]
  - Hallucination, auditory [Unknown]
  - Asthenia [Unknown]
  - Suicide attempt [Unknown]
  - Suicidal ideation [Unknown]
  - Feeling abnormal [Unknown]
  - Insomnia [Unknown]

NARRATIVE: CASE EVENT DATE: 20240301
